FAERS Safety Report 7268859-0 (Version None)
Quarter: 2011Q1

REPORT INFORMATION
  Report Type: 
  Country: None (occurrence: None)
  Receive Date: 20110201
  Receipt Date: 20110127
  Transmission Date: 20110831
  Serious: Yes (Hospitalization)
  Sender: FDA-Public Use
  Company Number: FR-PFIZER INC-2011019270

PATIENT
  Age: 56 Year
  Sex: Male

DRUGS (5)
  1. LASIX [Concomitant]
     Dosage: UNK
  2. APROVEL [Concomitant]
     Dosage: UNK
  3. KARDEGIC [Concomitant]
     Dosage: UNK
  4. TAHOR [Suspect]
     Dosage: UNK
     Dates: start: 20101201, end: 20110104
  5. ROCALTROL [Concomitant]
     Dosage: UNK

REACTIONS (4)
  - ABDOMINAL PAIN [None]
  - HEPATOCELLULAR INJURY [None]
  - JAUNDICE [None]
  - CYTOLYTIC HEPATITIS [None]
